FAERS Safety Report 7314221-1 (Version None)
Quarter: 2011Q1

REPORT INFORMATION
  Report Type: 
  Country: None (occurrence: None)
  Receive Date: 20110217
  Receipt Date: 20110217
  Transmission Date: 20110831
  Serious: Yes (Hospitalization)
  Sender: FDA-Public Use
  Company Number: None

PATIENT
  Age: 32 Year
  Sex: Female

DRUGS (1)
  1. BUPROPION 150 MG SR [Suspect]
     Indication: SMOKING CESSATION THERAPY
     Dosage: 150MG SR BID PO
     Route: 048
     Dates: start: 20101025, end: 20101118

REACTIONS (5)
  - FEELING COLD [None]
  - ASTHMA [None]
  - DRY MOUTH [None]
  - HYPERHIDROSIS [None]
  - VOMITING PROJECTILE [None]
